FAERS Safety Report 9849115 (Version 1)
Quarter: 2013Q4

REPORT INFORMATION
  Report Type: Spontaneous
  Country: US (occurrence: None)
  Receive Date: 20131224
  Receipt Date: 20131224
  Transmission Date: 20140711
  Serious: Yes (Other)
  Sender: FDA-Public Use
  Company Number: PHEH2013US013912

PATIENT
  Age: 49 Year
  Sex: Female
  Weight: 65 kg

DRUGS (41)
  1. MYFORTIC (MYCOPHENOLIC ACID) TABLET [Suspect]
     Indication: LUNG TRANSPLANT
  2. PANCRASE (PANCREATIN) [Concomitant]
  3. AZITHROMYCIN (AZITHROMYCIN) [Concomitant]
  4. ALBUTEROL SULFATE (SALBUTAMOL SULFATE) [Concomitant]
  5. LANTUS (INSULIN GLARGINE) [Concomitant]
  6. HUMALOG (INSULIN LISPRO) [Concomitant]
  7. PREDNISONE (PREDNISONE) [Concomitant]
  8. PROGRAF (TACROLIMUS) [Concomitant]
  9. BACTRIM (SULFAMETHOXAZOLE, TRIMETHOPRIM) [Concomitant]
  10. FLONASE (FLUTICASONE PROPIONATE) [Concomitant]
  11. DIURETICS (NO INGREDIENTS/SUBSTANCES) [Concomitant]
  12. ACYCLOVIR (ACICLOVIR) CAPSULE [Concomitant]
  13. TOBI (TOBRAMYCIN) [Concomitant]
  14. PRILOSEC (OMEPRAZOLE) [Concomitant]
  15. MIGRAINE (DICHLORALPHENAZONE, ISOMETHEPTENE MUCATE, PARACETAMOL) [Concomitant]
  16. VITAMIN D (ERGOCALCIFEROL) CAPSULE [Concomitant]
  17. ACETAMINOPHEN (PARACETAMOL) [Concomitant]
  18. OXYCODONE (OXYCODONE) [Concomitant]
  19. ALPRAZOLAM (ALPRAZOLAM) [Concomitant]
  20. AMOXICILLIN (AMOXICILLIN) [Concomitant]
  21. AMOXICILLIN AND CLAVULANATE POTASSIUM (AMOXICILLIN TRIHYDRATE, CLAVULANATE POTASSIUM) [Concomitant]
  22. AZATHIOPRINE (AZATHIOPRINE) [Concomitant]
  23. AZELASTINE HYDROCHLORIDE (AZELASTINE HYDROCHLORIDE) 12/10/2008 TO 05/10/2010 [Concomitant]
  24. CALCIUM CARBONATE (CALCIUM CARBONATE) TABLET [Concomitant]
  25. CEFEPIME (CEFEPIME) [Concomitant]
  26. CELECOXIB (CELECOXIB) CAPSULE [Concomitant]
  27. CIPROFLOXACIN (CIPROFLOXACIN) TABLET [Concomitant]
  28. COLISTIN SULFATE (COLISTIN SULFATE) [Concomitant]
  29. CYCLOBENZAPRIN HYDROCHLORIDE (CYCLOBENZAPRINE HYDROCHLORIDE) [Concomitant]
  30. DESLORATADINE (DESLORATADINE) TABLET [Concomitant]
  31. DOCUSATE (DOCUSATE) [Concomitant]
  32. DORNASE ALFA (DORNASE ALFA) [Concomitant]
  33. FAMOTIDINE (FAMOTIDINE) [Concomitant]
  34. FERROUS SULFATE (FERROUS SULFATE) [Concomitant]
  35. FUROSEMIDE (FUROSEMIDE) [Concomitant]
  36. INSULIN ISOPHANE (INSULIN ISOPHANE BOVINE) [Concomitant]
  37. LORATADINE (LORATADINE) (LORATADINE) [Concomitant]
  38. METRONIDAZOLE (METRONIDAZOLE) [Concomitant]
  39. NYSTATIN (NYSTATIN) [Concomitant]
  40. TACROLIMUS (TACROLIMUS) [Concomitant]
  41. WARFARIN SODIUM (WARFARIN SODIUM) [Concomitant]

REACTIONS (1)
  - Lung transplant rejection [None]
